FAERS Safety Report 5493282-9 (Version None)
Quarter: 2007Q4

REPORT INFORMATION
  Report Type: 
  Country: None (occurrence: None)
  Receive Date: 20071023
  Receipt Date: 20071016
  Transmission Date: 20080405
  Serious: Yes (Death)
  Sender: FDA-Public Use
  Company Number: JP-BRISTOL-MYERS SQUIBB COMPANY-13947759

PATIENT
  Age: 64 Year
  Sex: Male

DRUGS (4)
  1. PARAPLATIN [Suspect]
     Indication: B-CELL LYMPHOMA
     Route: 041
     Dates: start: 20050201
  2. LASTET [Concomitant]
     Route: 042
     Dates: start: 20050201
  3. IFOMIDE [Concomitant]
     Route: 042
     Dates: start: 20050201
  4. DEXAMETHASONE 0.5MG TAB [Concomitant]
     Dates: start: 20050201

REACTIONS (1)
  - ACUTE LEUKAEMIA [None]
